FAERS Safety Report 5572274-5 (Version None)
Quarter: 2007Q4

REPORT INFORMATION
  Report Type: 
  Country: None (occurrence: None)
  Receive Date: 20071219
  Receipt Date: 20071211
  Transmission Date: 20080405
  Serious: Yes (Life-Threatening, Hospitalization)
  Sender: FDA-Public Use
  Company Number: TPG2007A00766

PATIENT
  Age: 68 Year
  Sex: Female

DRUGS (5)
  1. COMPETACT (PIOGLITAZONE HYDROCHLORIDE, METFORMIN HYDROCHLORIDE) [Suspect]
     Indication: TYPE 2 DIABETES MELLITUS
     Dosage: PIOGLITAZONE 15 MG /METFORMIN 850 MG PER ORAL
     Route: 048
     Dates: start: 20070626, end: 20070810
  2. GLYBURIDE [Concomitant]
  3. LISI PLUS (HYDROCHLOROTHIAZIDE, LISINOPRIL) [Concomitant]
  4. METOPROLOL TARTRATE [Concomitant]
  5. ACETYLSALICYLIC ACID SRT [Concomitant]

REACTIONS (22)
  - ACIDOSIS [None]
  - ANAEMIA [None]
  - APHONIA [None]
  - BRADYCARDIA [None]
  - CARDIAC ARREST [None]
  - CARDIOVASCULAR INSUFFICIENCY [None]
  - DIABETIC NEPHROPATHY [None]
  - DIZZINESS [None]
  - DRY SKIN [None]
  - DYSPHAGIA [None]
  - FLATULENCE [None]
  - HAEMODIALYSIS [None]
  - HYPERKALAEMIA [None]
  - LACTIC ACIDOSIS [None]
  - NAUSEA [None]
  - PNEUMONIA [None]
  - RENAL FAILURE [None]
  - RESPIRATORY FAILURE [None]
  - SOMNOLENCE [None]
  - TACHYPNOEA [None]
  - URINARY TRACT INFECTION ENTEROCOCCAL [None]
  - VOMITING [None]
